FAERS Safety Report 5023245-9 (Version None)
Quarter: 2006Q2

REPORT INFORMATION
  Report Type: 
  Country: None (occurrence: None)
  Receive Date: 20060606
  Receipt Date: 20060526
  Transmission Date: 20061013
  Serious: Yes (Hospitalization, Other)
  Sender: FDA-Public Use
  Company Number: GB200605001115

PATIENT
  Age: 74 Year
  Sex: Female
  Weight: 98 kg

DRUGS (7)
  1. ALIMTA [Suspect]
     Indication: MESOTHELIOMA
     Dosage: 500 MG, INTRAVENOUS
     Route: 042
     Dates: start: 20060210, end: 20060407
  2. CISPLATIN [Concomitant]
  3. OMEPRAZOLE [Concomitant]
  4. MEBEVERINE (MEBEVERINE) [Concomitant]
  5. AMITRIPTYLINE HCL [Concomitant]
  6. FOLIC ACID [Concomitant]
  7. CYANOCOBALAMIN [Concomitant]

REACTIONS (2)
  - BLOOD MAGNESIUM DECREASED [None]
  - NAUSEA [None]
